FAERS Safety Report 5090268-3 (Version None)
Quarter: 2006Q3

REPORT INFORMATION
  Report Type: 
  Country: None (occurrence: None)
  Receive Date: 20060828
  Receipt Date: 20060629
  Transmission Date: 20061208
  Serious: No
  Sender: FDA-Public Use
  Company Number: US-GLAXOSMITHKLINE-A0610794A

PATIENT
  Sex: Female

DRUGS (3)
  1. WELLBUTRIN XL [Suspect]
     Indication: DEPRESSION
     Dosage: 300MG PER DAY
     Route: 048
     Dates: start: 20060101
  2. LEXAPRO [Concomitant]
  3. ASTHMA MEDICATION [Concomitant]

REACTIONS (3)
  - HYPOAESTHESIA ORAL [None]
  - PARAESTHESIA ORAL [None]
  - WEIGHT INCREASED [None]
